FAERS Safety Report 7549110-0 (Version None)
Quarter: 2011Q2

REPORT INFORMATION
  Report Type: 
  Country: None (occurrence: None)
  Receive Date: 20110615
  Receipt Date: 20110610
  Transmission Date: 20111010
  Serious: Yes (Other)
  Sender: FDA-Public Use
  Company Number: US-AMGEN-USASP2011030210

PATIENT
  Sex: Male

DRUGS (4)
  1. LEUCOVORIN CALCIUM [Concomitant]
  2. NEUPOGEN [Suspect]
     Indication: CHEMOTHERAPY
     Dosage: 480 A?G, AFTER CHEMO
  3. 5-FU                               /00098801/ [Concomitant]
     Dosage: UNK
  4. OXALIPLATIN [Concomitant]

REACTIONS (6)
  - PRURITUS [None]
  - DYSPNOEA [None]
  - SWELLING FACE [None]
  - URTICARIA [None]
  - HYPERSENSITIVITY [None]
  - ERYTHEMA [None]
